FAERS Safety Report 14264978 (Version 3)
Quarter: 2018Q1

REPORT INFORMATION
  Report Type: Spontaneous
  Country: DE (occurrence: DE)
  Receive Date: 20171208
  Receipt Date: 20180306
  Transmission Date: 20180508
  Serious: Yes (Hospitalization)
  Sender: FDA-Public Use
  Company Number: PHHY2017DE179280

PATIENT
  Age: 78 Year
  Sex: Male

DRUGS (6)
  1. LEVODOPA/BENSERAZIDE [Concomitant]
     Active Substance: BENSERAZIDE\LEVODOPA
     Indication: PRODUCT USED FOR UNKNOWN INDICATION
     Dosage: 1 DF, PRN (AS NEEDED (PRN))
     Route: 065
  2. STALEVO [Suspect]
     Active Substance: CARBIDOPA\ENTACAPONE\LEVODOPA
     Dosage: 3 DF, (9 UG/LITRE) TID
     Route: 065
  3. STALEVO [Suspect]
     Active Substance: CARBIDOPA\ENTACAPONE\LEVODOPA
     Indication: PRODUCT USED FOR UNKNOWN INDICATION
     Dosage: 1 DF, (3 UG/LITRE) TID
     Route: 065
  4. ROTIGOTINE [Suspect]
     Active Substance: ROTIGOTINE
     Dosage: 3 MG (2 MG + 1 MG PATCH), UNK
     Route: 065
  5. ROTIGOTINE [Suspect]
     Active Substance: ROTIGOTINE
     Dosage: 5 MG, QD (2 X 2 MG AND 1X 1 MG = 5 MG DAILY)
     Route: 065
     Dates: start: 20131202
  6. ROTIGOTINE [Suspect]
     Active Substance: ROTIGOTINE
     Indication: PARKINSON^S DISEASE
     Dosage: 3 MG, UNK (PATCH)
     Route: 065

REACTIONS (3)
  - Drug ineffective [Unknown]
  - Product adhesion issue [Unknown]
  - Circulatory collapse [Recovering/Resolving]

NARRATIVE: CASE EVENT DATE: 20170901
